FAERS Safety Report 9878266 (Version 2)
Quarter: 2014Q1

REPORT INFORMATION
  Report Type: Spontaneous
  Country: FR (occurrence: FR)
  Receive Date: 20140206
  Receipt Date: 20140211
  Transmission Date: 20141002
  Serious: Yes (Hospitalization)
  Sender: FDA-Public Use
  Company Number: FR-JNJFOC-20140203103

PATIENT
  Age: 73 Year
  Sex: Male

DRUGS (8)
  1. XARELTO [Suspect]
     Indication: CEREBROVASCULAR ACCIDENT PROPHYLAXIS
     Route: 048
     Dates: start: 20131201, end: 20131208
  2. XARELTO [Suspect]
     Indication: ATRIAL FIBRILLATION
     Route: 048
     Dates: start: 20131201, end: 20131208
  3. GALVUS [Concomitant]
     Indication: PRODUCT USED FOR UNKNOWN INDICATION
     Route: 048
  4. GLICLAZIDE [Concomitant]
     Route: 048
  5. CHIBRO-PROSCAR [Concomitant]
     Route: 048
  6. ZOXAN-D [Concomitant]
     Route: 048
  7. ATENOLOL [Concomitant]
     Route: 048
  8. APROVEL [Concomitant]
     Route: 048

REACTIONS (3)
  - Drug ineffective [Recovered/Resolved]
  - Carotid artery occlusion [Recovered/Resolved]
  - Ischaemic stroke [Recovered/Resolved]
